FAERS Safety Report 7308402-0 (Version None)
Quarter: 2011Q1

REPORT INFORMATION
  Report Type: 
  Country: None (occurrence: None)
  Receive Date: 20110223
  Receipt Date: 20110209
  Transmission Date: 20110831
  Serious: Yes (Death, Hospitalization, Other)
  Sender: FDA-Public Use
  Company Number: US-CELGENEUS-163-21880-10120722

PATIENT
  Sex: Male

DRUGS (3)
  1. VIDAZA [Concomitant]
     Route: 065
  2. REVLIMID [Suspect]
     Route: 048
     Dates: start: 20101028, end: 20101101
  3. REVLIMID [Suspect]
     Route: 048
     Dates: start: 20101130

REACTIONS (3)
  - PANCYTOPENIA [None]
  - DEATH [None]
  - BLOOD URINE PRESENT [None]
